FAERS Safety Report 4464334-7 (Version None)
Quarter: 2004Q4

REPORT INFORMATION
  Report Type: 
  Country: None (occurrence: None)
  Receive Date: 20041001
  Receipt Date: 20040915
  Transmission Date: 20050328
  Serious: Yes (Life-Threatening)
  Sender: FDA-Public Use
  Company Number: GB-MERCK-0409GBR00165

PATIENT
  Age: 76 Year
  Sex: Female
  Weight: 59 kg

DRUGS (4)
  1. FOSAMAX [Suspect]
     Indication: OSTEOPOROSIS
     Route: 048
     Dates: start: 20021210, end: 20040910
  2. CALCIUM (UNSPECIFIED) [Concomitant]
     Route: 065
  3. PSYLLIUM HUSK [Concomitant]
     Route: 065
  4. SENNA [Concomitant]
     Route: 065

REACTIONS (1)
  - NEUTROPENIA [None]
